FAERS Safety Report 7204022-7 (Version None)
Quarter: 2010Q4

REPORT INFORMATION
  Report Type: 
  Country: None (occurrence: None)
  Receive Date: 20101230
  Receipt Date: 20101216
  Transmission Date: 20110411
  Serious: Yes (Other)
  Sender: FDA-Public Use
  Company Number: PHHY2010MX85550

PATIENT

DRUGS (2)
  1. PREDNISONE [Suspect]
     Indication: SYSTEMIC LUPUS ERYTHEMATOSUS
     Dosage: 60 MG, QD
  2. PREDNISONE [Suspect]
     Dosage: 20 MG, QD

REACTIONS (4)
  - ARTHRALGIA [None]
  - GLOMERULONEPHRITIS [None]
  - HIP ARTHROPLASTY [None]
  - OSTEONECROSIS [None]
